FAERS Safety Report 5287738-1 (Version None)
Quarter: 2007Q2

REPORT INFORMATION
  Report Type: 
  Country: None (occurrence: None)
  Receive Date: 20070402
  Receipt Date: 20070402
  Transmission Date: 20071010
  Serious: Yes (Hospitalization)
  Sender: FDA-Public Use
  Company Number: None

PATIENT
  Sex: Female
  Weight: 47.3 kg

DRUGS (2)
  1. TEMOZOLOMIDE [Suspect]
     Dosage: 6295 MG
  2. PRIMAXIN [Concomitant]

REACTIONS (5)
  - HYPOTENSION [None]
  - PNEUMONIA [None]
  - RASH [None]
  - SEPSIS [None]
  - SINUSITIS [None]
